FAERS Safety Report 8817003 (Version 1)
Quarter: 2012Q4

REPORT INFORMATION
  Report Type: Spontaneous
  Country: US (occurrence: None)
  Receive Date: 20121002
  Receipt Date: 20121002
  Transmission Date: 20130627
  Serious: Yes (Other)
  Sender: FDA-Public Use
  Company Number: None

PATIENT
  Sex: Female
  Weight: 105.69 kg

DRUGS (1)
  1. GLUCOPHAGE XR [Suspect]
     Dosage: one tablet; daily; oral
     Route: 048

REACTIONS (2)
  - Blood glucose increased [None]
  - Product substitution issue [None]
